FAERS Safety Report 20793440 (Version 2)
Quarter: 2022Q3

REPORT INFORMATION
  Report Type: Report from Study
  Country: US (occurrence: US)
  Receive Date: 20220506
  Receipt Date: 20220713
  Transmission Date: 20221027
  Serious: Yes (Other)
  Sender: FDA-Public Use
  Company Number: US-JNJFOC-20220502836

PATIENT
  Age: 27 Year
  Sex: Female
  Weight: 56.750 kg

DRUGS (2)
  1. INFLIXIMAB [Suspect]
     Active Substance: INFLIXIMAB
     Indication: Inflammatory bowel disease
     Route: 041
     Dates: start: 20100128, end: 20201023
  2. INFLIXIMAB [Suspect]
     Active Substance: INFLIXIMAB
     Dosage: RE-INITIATED ON UNKNOWN DATE AND CONTINUES
     Route: 041

REACTIONS (1)
  - Ulcerative keratitis [Not Recovered/Not Resolved]

NARRATIVE: CASE EVENT DATE: 20211224
